FAERS Safety Report 25741660 (Version 1)
Quarter: 2025Q3

REPORT INFORMATION
  Report Type: Spontaneous
  Country: US (occurrence: US)
  Receive Date: 20250829
  Receipt Date: 20250829
  Transmission Date: 20251020
  Serious: Yes (Other)
  Sender: ACCORD
  Company Number: US-Accord-501466

PATIENT
  Age: 14 Year
  Sex: Female

DRUGS (2)
  1. MYCOPHENOLIC ACID [Suspect]
     Active Substance: MYCOPHENOLIC ACID
     Indication: Takayasu^s arteritis
  2. ADALIMUMAB [Suspect]
     Active Substance: ADALIMUMAB
     Indication: Takayasu^s arteritis

REACTIONS (4)
  - Disseminated coccidioidomycosis [Recovering/Resolving]
  - Rhegmatogenous retinal detachment [Unknown]
  - Off label use [Unknown]
  - Eye abscess [Unknown]
